FAERS Safety Report 9357271 (Version 1)
Quarter: 2013Q2

REPORT INFORMATION
  Report Type: Spontaneous
  Country: US (occurrence: None)
  Receive Date: 20130617
  Receipt Date: 20130617
  Transmission Date: 20140414
  Serious: Yes (Hospitalization)
  Sender: FDA-Public Use
  Company Number: AUR-APL-2013-04784

PATIENT
  Age: 73 Year
  Sex: Female

DRUGS (5)
  1. SERTRALINE [Suspect]
     Indication: DEPRESSION
  2. PROCHLORPERAZINE [Suspect]
     Indication: NAUSEA
  3. PROCHLORPERAZINE [Suspect]
     Indication: VOMITING
  4. IFOSFAMIDE (IFOSFAMIDE) [Concomitant]
  5. METHYLTHIONINIUM CHLORIDE (METHYLTHIONINIUM CHLORIDE) [Concomitant]

REACTIONS (3)
  - Serotonin syndrome [None]
  - Nausea [None]
  - Vomiting [None]
